FAERS Safety Report 5950636-1 (Version None)
Quarter: 2008Q4

REPORT INFORMATION
  Report Type: 
  Country: None (occurrence: None)
  Receive Date: 20081112
  Receipt Date: 20081103
  Transmission Date: 20090506
  Serious: Yes (Hospitalization)
  Sender: FDA-Public Use
  Company Number: US-AVENTIS-200817527US

PATIENT
  Sex: Female

DRUGS (7)
  1. KETEK [Suspect]
     Dosage: DOSE: 5-6 DOSES
     Dates: start: 20060401
  2. ADVIL [Concomitant]
     Dosage: DOSE: 1 TABLET
     Route: 048
  3. PHENERGAN HCL [Concomitant]
     Dosage: DOSE: 25 MG Q4H
     Route: 048
  4. SALINE                             /00075401/ [Concomitant]
     Dosage: DOSE: 0.65%
  5. GUAIFENESIN [Concomitant]
     Route: 048
  6. NASONEX [Concomitant]
     Dosage: DOSE: 50 MCG, 1 P VN
     Route: 045
  7. ADVIL [Concomitant]

REACTIONS (26)
  - ABDOMINAL PAIN UPPER [None]
  - ALANINE AMINOTRANSFERASE INCREASED [None]
  - ANTIMITOCHONDRIAL ANTIBODY [None]
  - ASPARTATE AMINOTRANSFERASE INCREASED [None]
  - BLOOD ALKALINE PHOSPHATASE INCREASED [None]
  - BLOOD BILIRUBIN INCREASED [None]
  - BLOOD LACTATE DEHYDROGENASE INCREASED [None]
  - CHANGE OF BOWEL HABIT [None]
  - CHILLS [None]
  - CHOLESTASIS [None]
  - CYTOMEGALOVIRUS TEST [None]
  - DECREASED APPETITE [None]
  - DRUG INEFFECTIVE [None]
  - DYSPEPSIA [None]
  - EPSTEIN-BARR VIRUS INFECTION [None]
  - FAECES HARD [None]
  - FATIGUE [None]
  - HEPATITIS [None]
  - JAUNDICE [None]
  - MALAISE [None]
  - NAUSEA [None]
  - RESPIRATORY DISORDER [None]
  - SMOOTH MUSCLE ANTIBODY [None]
  - THIRST [None]
  - TREMOR [None]
  - VOMITING [None]
